FAERS Safety Report 7115874-3 (Version None)
Quarter: 2010Q4

REPORT INFORMATION
  Report Type: 
  Country: None (occurrence: None)
  Receive Date: 20101118
  Receipt Date: 20101118
  Transmission Date: 20110411
  Serious: Yes (Disabling, Other)
  Sender: FDA-Public Use
  Company Number: None

PATIENT
  Age: 62 Year
  Sex: Female
  Weight: 67.586 kg

DRUGS (4)
  1. CIPROFLOXACIN HCL [Suspect]
     Indication: URINARY TRACT INFECTION
     Dosage: 2X 250MG 5S DAY MOUTH (ORAL)
     Route: 048
     Dates: start: 20091126
  2. CIPROFLOXACIN HCL [Suspect]
     Indication: URINARY TRACT INFECTION
     Dosage: 2X 250MG 5S DAY MOUTH (ORAL)
     Route: 048
     Dates: start: 20091127
  3. CIPROFLOXACIN HCL [Suspect]
     Indication: URINARY TRACT INFECTION
     Dosage: 2X 250MG 5S DAY MOUTH (ORAL)
     Route: 048
     Dates: start: 20091128
  4. CIPROFLOXACIN HCL [Suspect]
     Indication: URINARY TRACT INFECTION
     Dosage: 2X 250MG 5S DAY MOUTH (ORAL)
     Route: 048
     Dates: start: 20091129

REACTIONS (3)
  - BURNING SENSATION [None]
  - NERVE INJURY [None]
  - TENDONITIS [None]
